FAERS Safety Report 7246134-8 (Version None)
Quarter: 2011Q1

REPORT INFORMATION
  Report Type: 
  Country: None (occurrence: None)
  Receive Date: 20110126
  Receipt Date: 20110119
  Transmission Date: 20110831
  Serious: Yes (Hospitalization)
  Sender: FDA-Public Use
  Company Number: A0908734A

PATIENT
  Sex: Female

DRUGS (1)
  1. PAXIL [Suspect]
     Indication: PRODUCT USED FOR UNKNOWN INDICATION
     Route: 048
     Dates: start: 20090701, end: 20090801

REACTIONS (4)
  - MEMORY IMPAIRMENT [None]
  - MANIA [None]
  - THINKING ABNORMAL [None]
  - ABNORMAL BEHAVIOUR [None]
